FAERS Safety Report 11611692 (Version 1)
Quarter: 2015Q4

REPORT INFORMATION
  Report Type: Spontaneous
  Country: US (occurrence: US)
  Receive Date: 20151008
  Receipt Date: 20151008
  Transmission Date: 20160304
  Serious: Yes (Other)
  Sender: FDA-Public Use
  Company Number: US-SAGENTPRD-2015-US-000027

PATIENT
  Age: 66 Year
  Sex: Female
  Weight: 47.63 kg

DRUGS (1)
  1. OCTREOTIDE ACETATE INJECTION, PRESERVATIVE FREE, 100 MCG/ML [Suspect]
     Active Substance: OCTREOTIDE ACETATE
     Indication: DIARRHOEA
     Route: 058
     Dates: start: 20150817, end: 20150820

REACTIONS (1)
  - Injection site pain [Unknown]

NARRATIVE: CASE EVENT DATE: 20150817
